FAERS Safety Report 25069785 (Version 1)
Quarter: 2025Q1

REPORT INFORMATION
  Report Type: Report from Study
  Country: IN (occurrence: IN)
  Receive Date: 20250312
  Receipt Date: 20250312
  Transmission Date: 20250409
  Serious: Yes (Hospitalization)
  Sender: ROCHE
  Company Number: IN-ROCHE-10000153810

PATIENT
  Age: 58 Year
  Sex: Female
  Weight: 48.5 kg

DRUGS (1)
  1. PHESGO [Suspect]
     Active Substance: HYALURONIDASE-ZZXF\PERTUZUMAB\TRASTUZUMAB
     Indication: Breast cancer
     Route: 058
     Dates: start: 20241116

REACTIONS (6)
  - Diarrhoea [Unknown]
  - Haemoglobin decreased [Unknown]
  - Hypotension [Unknown]
  - Proctalgia [Unknown]
  - Modified radical mastectomy [Unknown]
  - Asthenia [Unknown]

NARRATIVE: CASE EVENT DATE: 20250114
